FAERS Safety Report 24443929 (Version 1)
Quarter: 2024Q4

REPORT INFORMATION
  Report Type: Spontaneous
  Country: IT (occurrence: IT)
  Receive Date: 20241016
  Receipt Date: 20241016
  Transmission Date: 20250114
  Serious: Yes (Life-Threatening, Hospitalization, Disabling, Other)
  Sender: PFIZER
  Company Number: None

PATIENT
  Age: 67 Year
  Sex: Male
  Weight: 79 kg

DRUGS (5)
  1. METHOTREXATE SODIUM [Suspect]
     Active Substance: METHOTREXATE SODIUM
     Indication: Allogenic stem cell transplantation
     Dosage: 30 MG, SINGLE
     Route: 042
     Dates: start: 20240828, end: 20240828
  2. METHOTREXATE SODIUM [Suspect]
     Active Substance: METHOTREXATE SODIUM
     Dosage: 20 MG, SINGLE
     Route: 042
     Dates: start: 20240830, end: 20240830
  3. METHOTREXATE SODIUM [Suspect]
     Active Substance: METHOTREXATE SODIUM
     Dosage: 20 MG, SINGLE
     Route: 042
     Dates: start: 20240902, end: 20240902
  4. TREOSULFAN [Suspect]
     Active Substance: TREOSULFAN
     Indication: Allogenic stem cell transplantation
     Dosage: 10000 MG/MQ/DIE
     Route: 042
     Dates: start: 20240823, end: 20240825
  5. FLUDARABINE [Suspect]
     Active Substance: FLUDARABINE PHOSPHATE
     Indication: Allogenic stem cell transplantation
     Dosage: 30 MG/MQ/DIE
     Route: 042
     Dates: start: 20240821, end: 20240825

REACTIONS (4)
  - Hepatorenal failure [Recovering/Resolving]
  - Hyperbilirubinaemia [Unknown]
  - Azotaemia [Unknown]
  - Encephalitis [Unknown]

NARRATIVE: CASE EVENT DATE: 20240911
